FAERS Safety Report 15617276 (Version 1)
Quarter: 2018Q4

REPORT INFORMATION
  Report Type: Spontaneous
  Country: CH (occurrence: CH)
  Receive Date: 20181114
  Receipt Date: 20181114
  Transmission Date: 20190205
  Serious: Yes (Death)
  Sender: FDA-Public Use
  Company Number: PHHY2018CH148668

PATIENT
  Age: 0 Year
  Sex: Male
  Weight: 2.18 kg

DRUGS (5)
  1. CETALLERG [Suspect]
     Active Substance: CETIRIZINE HYDROCHLORIDE
     Indication: FOETAL EXPOSURE DURING PREGNANCY
     Dosage: MATERNAL DOSE: 10 MG BID
     Route: 064
     Dates: start: 20171005, end: 20171006
  2. PREDNISONE. [Suspect]
     Active Substance: PREDNISONE
     Indication: FOETAL EXPOSURE DURING PREGNANCY
     Dosage: MATERNAL DOSE: 100 MG QD
     Route: 064
     Dates: start: 20171005, end: 20171007
  3. DIAMOX SEQUELS [Suspect]
     Active Substance: ACETAZOLAMIDE
     Dosage: MATERNAL DOSE: 250 MG BID
     Route: 064
     Dates: start: 20170930, end: 20171005
  4. STAMARIL [Suspect]
     Active Substance: YELLOW FEVER VIRUS STRAIN 17D-204 LIVE ANTIGEN
     Indication: FOETAL EXPOSURE DURING PREGNANCY
     Dosage: MATERNAL DOSE: 1 DF TOTAL
     Route: 064
     Dates: start: 20170922
  5. MALARONE [Suspect]
     Active Substance: ATOVAQUONE\PROGUANIL HYDROCHLORIDE
     Indication: FOETAL EXPOSURE DURING PREGNANCY
     Dosage: MATERNAL DOSE: 1 DF QD
     Route: 064

REACTIONS (4)
  - Lymphangioma [Fatal]
  - Exposure during pregnancy [Recovered/Resolved]
  - Congenital hepatobiliary anomaly [Fatal]
  - Pulmonary lymphangiectasia [Fatal]

NARRATIVE: CASE EVENT DATE: 20170922
